APPROVED DRUG PRODUCT: PENICILLIN G POTASSIUM
Active Ingredient: PENICILLIN G POTASSIUM
Strength: 20,000,000 UNITS/VIAL
Dosage Form/Route: INJECTABLE;INJECTION
Application: A065448 | Product #002 | TE Code: AP
Applicant: ISTITUTO BIOCHIMICO ITALIANO SPA
Approved: Aug 18, 2009 | RLD: No | RS: No | Type: RX